FAERS Safety Report 11314099 (Version 3)
Quarter: 2015Q4

REPORT INFORMATION
  Report Type: Spontaneous
  Country: JP (occurrence: JP)
  Receive Date: 20150727
  Receipt Date: 20151104
  Transmission Date: 20160304
  Serious: Yes (Hospitalization)
  Sender: FDA-Public Use
  Company Number: JP-BAYER-2015-380424

PATIENT
  Age: 39 Year
  Sex: Female

DRUGS (2)
  1. BAYASPIRIN [Suspect]
     Active Substance: ASPIRIN
     Dosage: UNK
     Route: 048
  2. SAIREI-TO [Suspect]
     Active Substance: UNSPECIFIED INGREDIENT
     Indication: ANTIPHOSPHOLIPID ANTIBODIES POSITIVE
     Dosage: UNK
     Route: 048

REACTIONS (6)
  - Skin necrosis [Recovering/Resolving]
  - Procedural site reaction [Recovering/Resolving]
  - Haemorrhage in pregnancy [None]
  - Post procedural haematoma [Recovering/Resolving]
  - Pyoderma gangrenosum [Recovering/Resolving]
  - Maternal exposure during pregnancy [Recovered/Resolved]
